FAERS Safety Report 8248917-4 (Version None)
Quarter: 2012Q2

REPORT INFORMATION
  Report Type: 
  Country: None (occurrence: None)
  Receive Date: 20120401
  Receipt Date: 20120308
  Transmission Date: 20120825
  Serious: Yes (Other)
  Sender: FDA-Public Use
  Company Number: HR-ALLERGAN-1203320US

PATIENT
  Age: 78 Year
  Sex: Male

DRUGS (4)
  1. LUMIGAN [Concomitant]
     Indication: GLAUCOMA
     Dosage: 1 GTT, QD
     Route: 047
     Dates: start: 20091201
  2. BETOPTIC [Suspect]
     Indication: GLAUCOMA
     Dosage: 1 GTT, QID
     Route: 047
     Dates: start: 20091201, end: 20100421
  3. VISTAGAN LIQUIFILM 0.5% EYE DROPS [Suspect]
     Indication: GLAUCOMA
     Dosage: 1 GTT, QID
     Dates: start: 20091201, end: 20100421
  4. REFRESH CONTACTS EYE DROPS [Concomitant]
     Indication: DRY EYE
     Dosage: UNK
     Route: 047
     Dates: start: 20111001

REACTIONS (4)
  - EXTRASYSTOLES [None]
  - ARRHYTHMIA [None]
  - CARDIAC FAILURE [None]
  - DRUG INTERACTION [None]
